FAERS Safety Report 11989297 (Version 5)
Quarter: 2016Q2

REPORT INFORMATION
  Report Type: Spontaneous
  Country: US (occurrence: US)
  Receive Date: 20160202
  Receipt Date: 20160426
  Transmission Date: 20160815
  Serious: Yes (Hospitalization)
  Sender: FDA-Public Use
  Company Number: US-BAXTER-2016BAX005195

PATIENT
  Age: 76 Year
  Sex: Female
  Weight: 41.31 kg

DRUGS (2)
  1. DIANEAL LOW CALCIUM PERITONEAL DIALYSIS SOLUTION WITH DEXTROSE [Suspect]
     Active Substance: CALCIUM CHLORIDE\DEXTROSE\MAGNESIUM CHLORIDE\SODIUM CHLORIDE\SODIUM LACTATE
     Indication: END STAGE RENAL DISEASE
     Dosage: 1500 UNITS NOT REPORTED
     Route: 033
     Dates: start: 20160120
  2. DIANEAL LOW CALCIUM PERITONEAL DIALYSIS SOLUTION WITH DEXTROSE [Suspect]
     Active Substance: CALCIUM CHLORIDE\DEXTROSE\MAGNESIUM CHLORIDE\SODIUM CHLORIDE\SODIUM LACTATE
     Indication: END STAGE RENAL DISEASE
     Dosage: 1500 UNITS NOT REPORTED
     Route: 033
     Dates: start: 20160120

REACTIONS (6)
  - Fall [Recovered/Resolved]
  - Asthenia [Unknown]
  - Myocardial infarction [Recovered/Resolved]
  - Cardiac disorder [Unknown]
  - Endocarditis [Recovering/Resolving]
  - Fluid overload [Recovered/Resolved]

NARRATIVE: CASE EVENT DATE: 20160122
